FAERS Safety Report 10373484 (Version 2)
Quarter: 2017Q2

REPORT INFORMATION
  Report Type: Spontaneous
  Country: US (occurrence: US)
  Receive Date: 20140808
  Receipt Date: 20170604
  Transmission Date: 20170829
  Serious: Yes (Death, Hospitalization)
  Sender: FDA-Public Use
  Company Number: US-B.I. PHARMACEUTICALS,INC./RIDGEFIELD-2014-BI-35909BP

PATIENT
  Age: 62 Year
  Sex: Female

DRUGS (61)
  1. CALCIUM [Concomitant]
     Active Substance: CALCIUM
     Indication: PRODUCT USED FOR UNKNOWN INDICATION
     Route: 065
  2. FERROUS SULFATE. [Concomitant]
     Active Substance: FERROUS SULFATE
     Route: 048
     Dates: start: 20111003
  3. GLYBURIDE. [Concomitant]
     Active Substance: GLYBURIDE
     Indication: TYPE 1 DIABETES MELLITUS
     Route: 048
  4. TIMOPTIC [Concomitant]
     Active Substance: TIMOLOL MALEATE
     Dosage: 0.5 PERCENT SOLUTION.
     Route: 031
     Dates: start: 20100316
  5. MIRALAX [Concomitant]
     Active Substance: POLYETHYLENE GLYCOL 3350
     Indication: CONSTIPATION
     Route: 048
     Dates: start: 20111005
  6. MOTRIN [Concomitant]
     Active Substance: IBUPROFEN
     Indication: BODY TEMPERATURE INCREASED
     Route: 048
  7. LEVAQUIN [Concomitant]
     Active Substance: LEVOFLOXACIN
     Indication: SEPSIS
     Route: 048
     Dates: end: 20100705
  8. AMPICILLIN [Concomitant]
     Active Substance: AMPICILLIN
     Indication: CELLULITIS
  9. BACLOFEN. [Concomitant]
     Active Substance: BACLOFEN
     Indication: QUADRIPLEGIA
     Dosage: (W/ 20 MG = 30 MG DOSE)
     Route: 048
     Dates: start: 20080123
  10. PLAVIX [Concomitant]
     Active Substance: CLOPIDOGREL BISULFATE
     Indication: ATRIAL FIBRILLATION
     Route: 048
     Dates: start: 20050527
  11. TIMOLOL MALEATE. [Concomitant]
     Active Substance: TIMOLOL MALEATE
     Indication: GLAUCOMA
     Route: 031
     Dates: start: 20111005
  12. SALINE NASAL SPRAY [Concomitant]
     Active Substance: SODIUM CHLORIDE
     Indication: PRODUCT USED FOR UNKNOWN INDICATION
     Route: 065
  13. LANOXIN [Concomitant]
     Active Substance: DIGOXIN
     Indication: ATRIAL FIBRILLATION
     Route: 048
     Dates: start: 20050810
  14. VITAMIN C [Concomitant]
     Active Substance: ASCORBIC ACID
     Indication: URINARY TRACT INFECTION
     Route: 048
     Dates: start: 20050630
  15. ULTRACET [Concomitant]
     Active Substance: ACETAMINOPHEN\TRAMADOL HYDROCHLORIDE
     Indication: PAIN
     Dosage: STRENGTH: 37.5/325MG
     Route: 048
     Dates: start: 20080714
  16. TYLENOL [Concomitant]
     Active Substance: ACETAMINOPHEN
     Indication: PRODUCT USED FOR UNKNOWN INDICATION
     Dosage: EVERY 3-4 HOURS
     Route: 065
  17. AMPICILLIN [Concomitant]
     Active Substance: AMPICILLIN
     Indication: ERYSIPELAS
     Route: 048
     Dates: start: 20111107, end: 20120131
  18. PRADAXA [Suspect]
     Active Substance: DABIGATRAN ETEXILATE MESYLATE
     Indication: ATRIAL FIBRILLATION
     Route: 048
     Dates: end: 20120305
  19. FERROUS SULFATE. [Concomitant]
     Active Substance: FERROUS SULFATE
     Route: 048
     Dates: start: 20100604
  20. LANTUS [Concomitant]
     Active Substance: INSULIN GLARGINE
     Indication: TYPE 2 DIABETES MELLITUS
     Dosage: STRENGTH: 100 U/ML
     Route: 058
     Dates: start: 20111005
  21. VICODIN [Concomitant]
     Active Substance: ACETAMINOPHEN\HYDROCODONE BITARTRATE
     Indication: PAIN
     Dosage: STRENGTH: 5/500 NOT TO EXCEED 400 MG IN 24 HOURS.
     Route: 048
  22. LORAZEPAM. [Concomitant]
     Active Substance: LORAZEPAM
     Indication: PRODUCT USED FOR UNKNOWN INDICATION
     Route: 065
  23. MORPHINE SULPHATE [Concomitant]
     Active Substance: MORPHINE SULFATE
     Indication: PAIN
     Dosage: STRENGTH: 20 MG/ML
     Route: 060
  24. NASACORT AQUA [Concomitant]
     Route: 045
  25. AVANDIA [Concomitant]
     Active Substance: ROSIGLITAZONE MALEATE
     Indication: DIABETES MELLITUS
     Route: 048
     Dates: start: 20041230
  26. DURAGESIC [Concomitant]
     Active Substance: FENTANYL
     Indication: PAIN
     Dosage: STRENGTH: 100 MCH/HR
     Route: 061
  27. EVISTA [Concomitant]
     Active Substance: RALOXIFENE HYDROCHLORIDE
     Route: 048
     Dates: start: 20111005
  28. NASACORT AQUA [Concomitant]
     Indication: HYPERSENSITIVITY
     Dosage: USE 2 SPRAYS IN EACH NOSTRIL ONCE DAILY
     Route: 045
  29. OSCAL [Concomitant]
     Active Substance: CALCIUM CARBONATE
     Indication: OSTEOPOROSIS
     Route: 048
     Dates: start: 20090212
  30. COUGH SYRUP [Concomitant]
     Active Substance: DEXTROMETHORPHAN HYDROBROMIDE\GUAIFENESIN
     Indication: DIABETES MELLITUS
     Route: 065
     Dates: start: 20100213
  31. NOVOLIN R [Concomitant]
     Active Substance: INSULIN HUMAN
     Indication: TYPE 1 DIABETES MELLITUS
     Dosage: STRENGTH: 100 U/ML DAILY DOSE: 25 UNITS
     Route: 058
     Dates: start: 20120608
  32. PRADAXA [Suspect]
     Active Substance: DABIGATRAN ETEXILATE MESYLATE
     Route: 048
     Dates: start: 20120307, end: 20120710
  33. ATENOLOL. [Concomitant]
     Active Substance: ATENOLOL
     Indication: HYPERTENSION
     Route: 048
     Dates: start: 20041230
  34. ATENOLOL. [Concomitant]
     Active Substance: ATENOLOL
     Route: 048
     Dates: start: 20111005
  35. LEXAPRO [Concomitant]
     Active Substance: ESCITALOPRAM OXALATE
     Indication: DEPRESSION
     Dosage: ( W/ 10MG=15MG DOSE)
     Route: 048
     Dates: start: 20091218
  36. LEXAPRO [Concomitant]
     Active Substance: ESCITALOPRAM OXALATE
     Route: 065
     Dates: start: 20100604
  37. VICODIN [Concomitant]
     Active Substance: ACETAMINOPHEN\HYDROCODONE BITARTRATE
     Dosage: STRENGTH: 5/500
     Route: 048
     Dates: start: 20100623
  38. BACLOFEN. [Concomitant]
     Active Substance: BACLOFEN
     Route: 048
     Dates: start: 20041230
  39. TIMOPTIC [Concomitant]
     Active Substance: TIMOLOL MALEATE
     Indication: GLAUCOMA
     Dosage: EYE DROP INSTILL
     Route: 031
     Dates: start: 20090418
  40. SENOKOT-S [Concomitant]
     Active Substance: DOCUSATE SODIUM\SENNOSIDES
     Indication: CONSTIPATION
     Route: 048
     Dates: start: 20090122
  41. ABILIFY [Concomitant]
     Active Substance: ARIPIPRAZOLE
     Indication: PSYCHOTIC DISORDER
     Route: 048
     Dates: start: 20111003
  42. ZITHROMAX [Concomitant]
     Active Substance: AZITHROMYCIN DIHYDRATE
     Indication: ERYSIPELAS
     Route: 048
     Dates: start: 20120104, end: 20120131
  43. EVISTA [Concomitant]
     Active Substance: RALOXIFENE HYDROCHLORIDE
     Indication: OSTEOPOROSIS
     Route: 048
     Dates: start: 20041230
  44. FERROUS SULFATE. [Concomitant]
     Active Substance: FERROUS SULFATE
     Indication: ANAEMIA
     Route: 048
     Dates: start: 20100102
  45. GLYBURIDE. [Concomitant]
     Active Substance: GLYBURIDE
     Indication: DIABETES MELLITUS
     Route: 048
     Dates: start: 20041230
  46. SORBITOL. [Concomitant]
     Active Substance: SORBITOL
     Indication: CONSTIPATION
     Route: 048
     Dates: start: 20050412
  47. ULTRAM [Concomitant]
     Active Substance: TRAMADOL HYDROCHLORIDE
     Indication: PRODUCT USED FOR UNKNOWN INDICATION
     Route: 065
  48. GABAPENTIN. [Concomitant]
     Active Substance: GABAPENTIN
     Indication: NEUROPATHY PERIPHERAL
     Route: 048
     Dates: start: 20111005
  49. ARICEPT [Concomitant]
     Active Substance: DONEPEZIL HYDROCHLORIDE
     Indication: PSYCHOTIC DISORDER
     Route: 048
  50. LIPITOR [Concomitant]
     Active Substance: ATORVASTATIN CALCIUM
     Indication: HYPERLIPIDAEMIA
     Route: 048
     Dates: start: 20041230
  51. MULTIVITAMINS [Concomitant]
     Active Substance: VITAMINS
     Indication: VITAMIN SUPPLEMENTATION
     Route: 048
  52. LUMIGAN [Concomitant]
     Active Substance: BIMATOPROST
     Indication: GLAUCOMA
     Dosage: INSTILL 1 DROPS IN (L) EYE ONCE DAILY
     Route: 031
     Dates: start: 20090325
  53. LUMIGAN [Concomitant]
     Active Substance: BIMATOPROST
     Route: 031
     Dates: start: 20111005
  54. MORPHINE SULPHATE [Concomitant]
     Active Substance: MORPHINE SULFATE
     Dosage: STRENGTH: 20 MG/ML;
     Route: 048
     Dates: start: 20120830
  55. CLINDAMYCIN. [Concomitant]
     Active Substance: CLINDAMYCIN
     Indication: PRODUCT USED FOR UNKNOWN INDICATION
     Route: 065
  56. ZESTRIL [Concomitant]
     Active Substance: LISINOPRIL
     Indication: HYPERTENSION
     Route: 048
     Dates: start: 20050329
  57. ZETIA [Concomitant]
     Active Substance: EZETIMIBE
     Indication: HYPERCHOLESTEROLAEMIA
     Route: 048
     Dates: start: 20060823
  58. NASONEX [Concomitant]
     Active Substance: MOMETASONE FUROATE
     Indication: HYPERSENSITIVITY
     Route: 045
     Dates: start: 20100528
  59. ZITHROMAX [Concomitant]
     Active Substance: AZITHROMYCIN DIHYDRATE
     Indication: INFECTION
     Route: 048
     Dates: start: 20120101, end: 20120131
  60. PENICILLIN [Concomitant]
     Active Substance: PENICILLIN
     Indication: INFECTION
     Route: 048
     Dates: start: 20120102, end: 20120112
  61. KEFLEX [Concomitant]
     Active Substance: CEPHALEXIN
     Indication: CELLULITIS
     Route: 048
     Dates: start: 20120126

REACTIONS (4)
  - Lower gastrointestinal haemorrhage [Recovered/Resolved]
  - Cerebral haemorrhage [Fatal]
  - Haemorrhagic anaemia [Unknown]
  - Coagulopathy [Unknown]

NARRATIVE: CASE EVENT DATE: 20120701
